FAERS Safety Report 8798350 (Version 2)
Quarter: 2012Q4

REPORT INFORMATION
  Report Type: 
  Country: US (occurrence: US)
  Receive Date: 20120920
  Receipt Date: 20121015
  Transmission Date: 20130627
  Serious: Yes (Other)
  Sender: FDA-Public Use
  Company Number: US-BAYER-2012-095142

PATIENT
  Age: 56 Year

DRUGS (1)
  1. VANQUISH [Suspect]
     Indication: FIBROMYALGIA
     Route: 048

REACTIONS (2)
  - Drug dependence [None]
  - Fibromyalgia [None]
